FAERS Safety Report 24602076 (Version 3)
Quarter: 2024Q4

REPORT INFORMATION
  Report Type: Report from Study
  Country: US (occurrence: US)
  Receive Date: 20241111
  Receipt Date: 20241215
  Transmission Date: 20250115
  Serious: Yes (Hospitalization, Other)
  Sender: ABBVIE
  Company Number: US-ABBVIE-5977450

PATIENT
  Age: 43 Year
  Sex: Male
  Weight: 72.574 kg

DRUGS (5)
  1. HUMIRA [Suspect]
     Active Substance: ADALIMUMAB
     Indication: Colitis ulcerative
     Route: 058
     Dates: start: 2014, end: 20241005
  2. CANASA [Concomitant]
     Active Substance: MESALAMINE
     Indication: Colitis ulcerative
     Dosage: TIME INTERVAL: AS NECESSARY
  3. DIPENTUM [Concomitant]
     Active Substance: OLSALAZINE SODIUM
     Indication: Product used for unknown indication
     Route: 048
     Dates: start: 1994, end: 20240930
  4. VITAMIN D3 [Concomitant]
     Active Substance: CHOLECALCIFEROL
     Indication: Product used for unknown indication
     Dosage: DOSE- 2000IU
     Route: 048
  5. FISH OIL [Concomitant]
     Active Substance: FISH OIL
     Indication: Product used for unknown indication
     Route: 048

REACTIONS (12)
  - Heart rate decreased [Recovered/Resolved]
  - Pain [Recovered/Resolved]
  - Lupus-like syndrome [Unknown]
  - Appendicitis perforated [Recovered/Resolved]
  - COVID-19 [Recovered/Resolved]
  - Epicondylitis [Unknown]
  - Procedural pain [Recovered/Resolved]
  - Infection [Recovered/Resolved]
  - Escherichia infection [Recovered/Resolved]
  - Arthritis [Unknown]
  - Hypotension [Recovered/Resolved]
  - Osteoarthritis [Unknown]

NARRATIVE: CASE EVENT DATE: 20150101
